FAERS Safety Report 7660085-6 (Version None)
Quarter: 2011Q3

REPORT INFORMATION
  Report Type: 
  Country: None (occurrence: None)
  Receive Date: 20110805
  Receipt Date: 20110722
  Transmission Date: 20111222
  Serious: Yes (Hospitalization)
  Sender: FDA-Public Use
  Company Number: PHHY2010DE46923

PATIENT
  Sex: Female

DRUGS (4)
  1. PRESINOL [Concomitant]
  2. AMLODIPINE [Concomitant]
     Indication: HYPERTENSION
  3. AMLOCLAIR [Concomitant]
     Indication: HYPERTENSION
     Dosage: 5 MG, UNK
     Dates: start: 20100301, end: 20100528
  4. RASILEZ [Suspect]
     Indication: HYPERTENSION
     Dosage: 150 MG, PER DAY
     Dates: start: 20080101, end: 20100528

REACTIONS (7)
  - HYPERTENSION [None]
  - LOCHIAL INFECTION [None]
  - PRE-ECLAMPSIA [None]
  - UTERINE CONTRACTIONS DURING PREGNANCY [None]
  - MATERNAL EXPOSURE DURING PREGNANCY [None]
  - PROTEINURIA [None]
  - OEDEMA [None]
